FAERS Safety Report 20137684 (Version 2)
Quarter: 2021Q4

REPORT INFORMATION
  Report Type: Spontaneous
  Country: US (occurrence: US)
  Receive Date: 20211202
  Receipt Date: 20211202
  Transmission Date: 20220303
  Serious: Yes (Death, Life-Threatening, Hospitalization, Other)
  Sender: FDA-Public Use
  Company Number: US-drreddys-LIT/USA/21/0144271

PATIENT
  Age: 65 Year
  Sex: Male

DRUGS (5)
  1. BIVALIRUDIN [Suspect]
     Active Substance: BIVALIRUDIN
     Indication: Deep vein thrombosis
  2. HEPARIN SODIUM [Suspect]
     Active Substance: HEPARIN SODIUM
     Indication: Product used for unknown indication
     Dosage: UNFRACTIONATED
  3. MODERNA COVID-19 VACCINE [Suspect]
     Active Substance: ELASOMERAN
     Indication: Product used for unknown indication
  4. IMMUNOGLOBULIN [Concomitant]
     Indication: Immune thrombocytopenia
  5. DEXAMETHASONE SODIUM PHOSPHATE [Concomitant]
     Active Substance: DEXAMETHASONE SODIUM PHOSPHATE
     Indication: Immune thrombocytopenia

REACTIONS (11)
  - Heparin-induced thrombocytopenia [Fatal]
  - Compartment syndrome [Fatal]
  - Haematoma muscle [Fatal]
  - Staphylococcal infection [Fatal]
  - Lactic acidosis [Fatal]
  - Pulmonary embolism [Fatal]
  - Encephalopathy [Fatal]
  - Shock [Fatal]
  - Deep vein thrombosis [Fatal]
  - Cerebral venous sinus thrombosis [Fatal]
  - Drug ineffective [Fatal]
